FAERS Safety Report 4842274-9 (Version None)
Quarter: 2005Q4

REPORT INFORMATION
  Report Type: 
  Country: None (occurrence: None)
  Receive Date: 20051125
  Receipt Date: 20051114
  Transmission Date: 20060501
  Serious: Yes (Disabling, Other)
  Sender: FDA-Public Use
  Company Number: 2005156628

PATIENT
  Sex: Female
  Weight: 56.6996 kg

DRUGS (7)
  1. NEURONTIN [Suspect]
     Indication: FIBROMYALGIA
     Dosage: 2400 MG (800 MG, THREE TIMES DAILY INTERVAL: EVERY DAY), ORAL
     Route: 048
     Dates: start: 20040101
  2. ZOLOFT [Suspect]
     Indication: DEPRESSION
     Dosage: (50 MG, DAILY, INTERVAL: EVERY DAY), ORAL
     Route: 048
  3. FENTANYL [Concomitant]
  4. PLAVIX [Concomitant]
  5. VERAPAMIL [Concomitant]
  6. FOSAMAX [Concomitant]
  7. PAMELOR [Concomitant]

REACTIONS (10)
  - BACK DISORDER [None]
  - BLOOD PRESSURE ABNORMAL [None]
  - CEREBROVASCULAR ACCIDENT [None]
  - DIFFICULTY IN WALKING [None]
  - FIBROMYALGIA [None]
  - GASTRIC BYPASS [None]
  - HYPOAESTHESIA [None]
  - NERVE INJURY [None]
  - OSTEOARTHRITIS [None]
  - TRANSIENT ISCHAEMIC ATTACK [None]
